FAERS Safety Report 5007103-1 (Version None)
Quarter: 2006Q1

REPORT INFORMATION
  Report Type: 
  Country: None (occurrence: None)
  Receive Date: 20060320
  Receipt Date: 20050613
  Transmission Date: 20060701
  Serious: Yes (Hospitalization, Other)
  Sender: FDA-Public Use
  Company Number: 2005-06-0859

PATIENT
  Sex: Female

DRUGS (1)
  1. PEG-INTRON [Suspect]

REACTIONS (3)
  - ALCOHOLISM [None]
  - DRUG DEPENDENCE [None]
  - SUICIDAL IDEATION [None]
